FAERS Safety Report 4499057-1 (Version None)
Quarter: 2004Q4

REPORT INFORMATION
  Report Type: 
  Country: None (occurrence: None)
  Receive Date: 20041110
  Receipt Date: 20041110
  Transmission Date: 20050328
  Serious: Yes (Hospitalization)
  Sender: FDA-Public Use
  Company Number: None

PATIENT
  Age: 76 Year
  Sex: Female
  Weight: 36.3 kg

DRUGS (3)
  1. BACTRIM DS [Suspect]
     Indication: URINARY TRACT INFECTION
     Dosage: 160/800 MG  BID ORAL
     Route: 048
     Dates: start: 20040915, end: 20040920
  2. LOTREL [Concomitant]
  3. LOTENSIN [Concomitant]

REACTIONS (5)
  - DEHYDRATION [None]
  - HYPERKALAEMIA [None]
  - RENAL DISORDER [None]
  - RENAL FAILURE ACUTE [None]
  - RENAL TUBULAR ACIDOSIS [None]
